FAERS Safety Report 4679419-X (Version None)
Quarter: 2005Q2

REPORT INFORMATION
  Report Type: 
  Country: None (occurrence: None)
  Receive Date: 20050602
  Receipt Date: 20050525
  Transmission Date: 20051028
  Serious: Yes (Hospitalization, Other)
  Sender: FDA-Public Use
  Company Number: 2005UW08122

PATIENT
  Age: 28141 Day
  Sex: Female
  Weight: 71.6 kg

DRUGS (7)
  1. NOLVADEX [Suspect]
     Indication: BREAST CANCER
     Route: 048
     Dates: start: 19980223, end: 20011204
  2. LIPITOR [Concomitant]
     Indication: HYPERCHOLESTEROLAEMIA
     Route: 048
  3. MIACALCIN [Concomitant]
     Indication: PROPHYLAXIS
     Route: 048
     Dates: start: 19980801
  4. EVISTA [Concomitant]
     Indication: OSTEOPOROSIS
     Route: 048
     Dates: start: 20020714
  5. ASPIRIN [Concomitant]
     Indication: PROPHYLAXIS
     Dosage: PRESTUDY
     Route: 048
  6. CALCIUM GLUCONATE [Concomitant]
     Indication: PROPHYLAXIS
     Route: 048
     Dates: start: 20020102
  7. VITAMIN D [Concomitant]
     Indication: PROPHYLAXIS
     Route: 048
     Dates: start: 20020710

REACTIONS (1)
  - OVARIAN CANCER [None]
